FAERS Safety Report 25933710 (Version 2)
Quarter: 2025Q4

REPORT INFORMATION
  Report Type: Spontaneous
  Country: CN (occurrence: CN)
  Receive Date: 20251017
  Receipt Date: 20251114
  Transmission Date: 20260117
  Serious: Yes (Other)
  Sender: ALEXION PHARMACEUTICALS
  Company Number: CN-AstraZeneca-CH-00968636A

PATIENT
  Age: 34 Year
  Sex: Male

DRUGS (1)
  1. SYMBICORT [Suspect]
     Active Substance: BUDESONIDE\FORMOTEROL FUMARATE DIHYDRATE
     Indication: Cough
     Dosage: ONE INHALATION IN THE MORNING AND ONE INHALATION IN THE EVENING
     Route: 065

REACTIONS (3)
  - Dry throat [Unknown]
  - Cough [Not Recovered/Not Resolved]
  - Oropharyngeal erythema [Unknown]

NARRATIVE: CASE EVENT DATE: 20251009
